FAERS Safety Report 17309069 (Version 1)
Quarter: 2020Q1

REPORT INFORMATION
  Report Type: Spontaneous
  Country: US (occurrence: US)
  Receive Date: 20200123
  Receipt Date: 20200123
  Transmission Date: 20200409
  Serious: Yes (Other)
  Sender: FDA-Public Use
  Company Number: US-PFIZER INC-2020026413

PATIENT
  Sex: Female

DRUGS (2)
  1. PROMETHAZINE HCL [Suspect]
     Active Substance: PROMETHAZINE HYDROCHLORIDE
     Indication: NAUSEA
     Dosage: UNK (PHENERGAN,I.V. PUSH)
     Route: 042
     Dates: start: 2000
  2. PROMETHAZINE HCL [Suspect]
     Active Substance: PROMETHAZINE HYDROCHLORIDE
     Indication: PAIN

REACTIONS (5)
  - Gangrene [Unknown]
  - Amputation [Unknown]
  - Product administration error [Unknown]
  - Incorrect route of product administration [Unknown]
  - Contraindication to medical treatment [Unknown]

NARRATIVE: CASE EVENT DATE: 2000
